FAERS Safety Report 13603266 (Version 1)
Quarter: 2017Q2

REPORT INFORMATION
  Report Type: Not Available
  Country: US (occurrence: US)
  Receive Date: 20170601
  Receipt Date: 20170601
  Transmission Date: 20170830
  Serious: Yes (Other)
  Sender: FDA-Public Use
  Company Number: US-ANIPHARMA-2017-US-005965

PATIENT
  Age: 69 Year
  Sex: Male

DRUGS (1)
  1. OPIUM TINCTURE [Suspect]
     Active Substance: MORPHINE

REACTIONS (1)
  - Optic neuritis [Unknown]
